FAERS Safety Report 15353746 (Version 1)
Quarter: 2018Q3

REPORT INFORMATION
  Report Type: Spontaneous
  Country: FR (occurrence: FR)
  Receive Date: 20180905
  Receipt Date: 20180905
  Transmission Date: 20181010
  Serious: Yes (Hospitalization, Other)
  Sender: FDA-Public Use
  Company Number: FR-SHIRE-FR201827746

PATIENT

DRUGS (1)
  1. CINRYZE [Suspect]
     Active Substance: HUMAN C1-ESTERASE INHIBITOR
     Indication: PRODUCT USED FOR UNKNOWN INDICATION
     Dosage: 1500 IU, TWICE PER WEEK
     Route: 065

REACTIONS (4)
  - Hereditary angioedema [Unknown]
  - Prescribed overdose [Unknown]
  - Laryngeal oedema [Unknown]
  - Exposure during pregnancy [Unknown]
